FAERS Safety Report 4589954-0 (Version None)
Quarter: 2005Q1

REPORT INFORMATION
  Report Type: 
  Country: None (occurrence: None)
  Receive Date: 20050125
  Receipt Date: 20040916
  Transmission Date: 20050727
  Serious: No
  Sender: FDA-Public Use
  Company Number: USA040771806

PATIENT
  Age: 77 Year
  Sex: Male
  Weight: 60 kg

DRUGS (5)
  1. FORTEO [Suspect]
     Indication: OSTEOPOROSIS
     Dosage: 20 UG DAY
     Dates: start: 20040609
  2. ACETAMINOPHEN AND HYDROCODONE BITARTRATE [Concomitant]
  3. UROXATRAL [Concomitant]
  4. PROTONIX [Concomitant]
  5. PREDNISONE TAB [Concomitant]

REACTIONS (4)
  - ARTHRALGIA [None]
  - BACK PAIN [None]
  - PAIN [None]
  - PAIN IN EXTREMITY [None]
